FAERS Safety Report 4446731-9 (Version None)
Quarter: 2004Q3

REPORT INFORMATION
  Report Type: 
  Country: None (occurrence: None)
  Receive Date: 20040910
  Receipt Date: 20040826
  Transmission Date: 20050211
  Serious: Yes (Other)
  Sender: FDA-Public Use
  Company Number: 2004060698

PATIENT
  Age: 50 Year
  Sex: Male

DRUGS (4)
  1. ATORVASTATIN (ATORVASTATIN) [Suspect]
     Indication: ILL-DEFINED DISORDER
     Dosage: 10 MG (10 MG 1 IN 1 D) ORAL
     Route: 048
  2. PREDNISONE [Concomitant]
  3. MORPHINE [Concomitant]
  4. ROFECOXIB [Concomitant]

REACTIONS (4)
  - ASTHENIA [None]
  - DRUG EFFECT DECREASED [None]
  - GUILLAIN-BARRE SYNDROME [None]
  - MYALGIA [None]
